FAERS Safety Report 6158419-7 (Version None)
Quarter: 2009Q2

REPORT INFORMATION
  Report Type: 
  Country: None (occurrence: None)
  Receive Date: 20090417
  Receipt Date: 20090410
  Transmission Date: 20091009
  Serious: Yes (Other)
  Sender: FDA-Public Use
  Company Number: US-ASTRAZENECA-2009UW09152

PATIENT
  Age: 84 Year
  Sex: Male
  Weight: 72.6 kg

DRUGS (4)
  1. TOPROL-XL [Suspect]
     Indication: HYPERTENSION
     Dosage: HOLD IF SYSTOLIC BLOOD PRESSURE IS LESS THAN 130
     Route: 048
     Dates: start: 20070101, end: 20070901
  2. TOPROL-XL [Suspect]
     Dosage: HOLD IF SYSTOLIC BLOOD PRESSURE IS LESS THAN 130
     Route: 048
     Dates: start: 20090209
  3. HUMIRA [Suspect]
     Indication: RHEUMATOID ARTHRITIS
     Dosage: 40 MG/0.8 ML
     Dates: start: 20090209
  4. CIALIS [Suspect]
     Indication: ERECTILE DYSFUNCTION
     Dates: start: 20080101

REACTIONS (4)
  - HYPERHIDROSIS [None]
  - HYPOTENSION [None]
  - PALLOR [None]
  - SYNCOPE [None]
